FAERS Safety Report 16140783 (Version 1)
Quarter: 2019Q2

REPORT INFORMATION
  Report Type: Spontaneous
  Country: US (occurrence: US)
  Receive Date: 20190401
  Receipt Date: 20190401
  Transmission Date: 20190711
  Serious: Yes (Other)
  Sender: FDA-Public Use
  Company Number: US-BAYER-2019-063141

PATIENT
  Age: 59 Year
  Sex: Male

DRUGS (6)
  1. CANGRELOR [Suspect]
     Active Substance: CANGRELOR
     Indication: PROPHYLAXIS
     Dosage: UNK
     Dates: start: 201807
  2. ENOXAPARIN [Suspect]
     Active Substance: ENOXAPARIN
     Indication: PROPHYLAXIS
     Dosage: UNK
     Dates: start: 201807
  3. RED BLOOD CELLS [Concomitant]
     Active Substance: HUMAN RED BLOOD CELL
     Indication: HAEMOSTASIS
     Dosage: 1 DF
     Dates: start: 201808
  4. PLATELETS [Concomitant]
     Active Substance: HUMAN PLATELET, ALLOGENIC
     Indication: HAEMOSTASIS
     Dosage: 1 DF
     Dates: start: 201808
  5. ACETYLSALICYLIC ACID (CARDIO) [Suspect]
     Active Substance: ASPIRIN
     Indication: ANTIPLATELET THERAPY
  6. PLASMA [Concomitant]
     Active Substance: HUMAN PLASMA
     Indication: HAEMOSTASIS
     Dosage: 2 DF
     Dates: start: 201808

REACTIONS (1)
  - Haemothorax [Recovered/Resolved]

NARRATIVE: CASE EVENT DATE: 2018
